FAERS Safety Report 23168076 (Version 4)
Quarter: 2023Q4

REPORT INFORMATION
  Report Type: Spontaneous
  Country: CA (occurrence: CA)
  Receive Date: 20231109
  Receipt Date: 20231227
  Transmission Date: 20240109
  Serious: Yes (Other)
  Sender: FDA-Public Use
  Company Number: CA-CELLTRION INC.-2023CA019695

PATIENT

DRUGS (9)
  1. INFLECTRA [Suspect]
     Active Substance: INFLIXIMAB-DYYB
     Indication: Colitis ulcerative
     Dosage: 10 MG/KG, WEEK 0
     Route: 042
     Dates: start: 20230731
  2. INFLECTRA [Suspect]
     Active Substance: INFLIXIMAB-DYYB
     Dosage: 5 MG/KG, W2, W6 AND THEN EVERY 8 WEEKS
     Route: 042
     Dates: start: 20230814
  3. INFLECTRA [Suspect]
     Active Substance: INFLIXIMAB-DYYB
     Dosage: 5 MG/KG, W2, W6 AND THEN EVERY 8 WEEKS
     Route: 042
     Dates: start: 20230912
  4. INFLECTRA [Suspect]
     Active Substance: INFLIXIMAB-DYYB
     Dosage: 600 MG, AFTER 8 WEEKS (PRESCRIBED IS EVERY 6 WEEKS)
     Route: 042
     Dates: start: 20231107
  5. INFLECTRA [Suspect]
     Active Substance: INFLIXIMAB-DYYB
     Dosage: 600 MG, AFTER 8 WEEKS (PRESCRIBED IS EVERY 6 WEEKS)
     Route: 042
     Dates: start: 20231107
  6. INFLECTRA [Suspect]
     Active Substance: INFLIXIMAB-DYYB
     Dosage: 600 MG, AFTER 5 WEEKS AND 6 DAYS
     Route: 042
     Dates: start: 20231218
  7. CORTISONE [Concomitant]
     Active Substance: CORTISONE
     Dosage: 5 MG
  8. CALCIUM [Concomitant]
     Active Substance: CALCIUM
     Dosage: 500 MG
  9. CHOLECALCIFEROL [Concomitant]
     Active Substance: CHOLECALCIFEROL
     Dosage: 800 IU

REACTIONS (7)
  - Condition aggravated [Recovered/Resolved]
  - Illness [Unknown]
  - Headache [Recovered/Resolved]
  - Off label use [Unknown]
  - Off label use [Unknown]
  - Off label use [Unknown]
  - Intentional product use issue [Unknown]

NARRATIVE: CASE EVENT DATE: 20230101
